FAERS Safety Report 19410016 (Version 1)
Quarter: 2021Q2

REPORT INFORMATION
  Report Type: Spontaneous
  Country: US (occurrence: US)
  Receive Date: 20210614
  Receipt Date: 20210614
  Transmission Date: 20210717
  Serious: Yes (Other)
  Sender: FDA-Public Use
  Company Number: US-SA-2021SA193572

PATIENT
  Age: 63 Year
  Sex: Female

DRUGS (1)
  1. AUBAGIO [Suspect]
     Active Substance: TERIFLUNOMIDE
     Indication: MULTIPLE SCLEROSIS
     Dosage: 14 MG, QD
     Route: 048
     Dates: start: 20160419

REACTIONS (5)
  - Muscle tightness [Unknown]
  - Muscular weakness [Unknown]
  - Grip strength decreased [Unknown]
  - Multiple sclerosis relapse [Unknown]
  - Neck pain [Unknown]

NARRATIVE: CASE EVENT DATE: 2021
